FAERS Safety Report 13567598 (Version 1)
Quarter: 2017Q2

REPORT INFORMATION
  Report Type: Spontaneous
  Country: IT (occurrence: IT)
  Receive Date: 20170522
  Receipt Date: 20170522
  Transmission Date: 20170830
  Serious: Yes (Hospitalization)
  Sender: FDA-Public Use
  Company Number: IT-BAYER-2017-092101

PATIENT
  Age: 80 Year
  Sex: Female

DRUGS (6)
  1. MONOCINQUE [Concomitant]
     Active Substance: ISOSORBIDE MONONITRATE
     Route: 048
  2. ASPIRINA 500 MG [Suspect]
     Active Substance: ASPIRIN
     Dosage: UNK UNK, QD
     Route: 048
  3. AMLODIPINE [Concomitant]
     Active Substance: AMLODIPINE BESYLATE
     Route: 048
  4. PROPAFENONE. [Concomitant]
     Active Substance: PROPAFENONE
     Route: 048
  5. APIXABAN [Suspect]
     Active Substance: APIXABAN
     Dosage: UNK UNK, QD
     Route: 048
  6. CARVASIN [Concomitant]
     Active Substance: ISOSORBIDE DINITRATE
     Route: 048

REACTIONS (2)
  - Dyspnoea exertional [Unknown]
  - Anaemia [Unknown]

NARRATIVE: CASE EVENT DATE: 20170421
